FAERS Safety Report 23827938 (Version 1)
Quarter: 2024Q2

REPORT INFORMATION
  Report Type: Report from Study
  Country: US (occurrence: US)
  Receive Date: 20240507
  Receipt Date: 20240507
  Transmission Date: 20240716
  Serious: Yes (Hospitalization)
  Sender: FDA-Public Use
  Company Number: US-ACTELION-A-US2019-188071

PATIENT
  Age: 73 Year
  Sex: Female
  Weight: 74.83 kg

DRUGS (2)
  1. VELETRI [Suspect]
     Active Substance: EPOPROSTENOL
     Indication: Pulmonary arterial hypertension
     Dosage: 16 NG/KG, PER MIN
     Route: 042
     Dates: end: 20190326
  2. UPTRAVI [Suspect]
     Active Substance: SELEXIPAG
     Indication: Pulmonary arterial hypertension
     Route: 048

REACTIONS (9)
  - Pulmonary hypertension [Unknown]
  - Therapy change [Recovered/Resolved]
  - Headache [Unknown]
  - Confusional state [Unknown]
  - Back pain [Unknown]
  - Hypoaesthesia [Unknown]
  - Palpitations [Unknown]
  - Product dosage form confusion [Unknown]
  - Seasonal allergy [Unknown]

NARRATIVE: CASE EVENT DATE: 20190304
